FAERS Safety Report 14626629 (Version 1)
Quarter: 2018Q1

REPORT INFORMATION
  Report Type: Spontaneous
  Country: US (occurrence: US)
  Receive Date: 20180312
  Receipt Date: 20180312
  Transmission Date: 20180509
  Serious: No
  Sender: FDA-Public Use
  Company Number: US-009507513-1802JPN008695

PATIENT
  Age: 48 Year
  Sex: Male

DRUGS (1)
  1. FOSAMAX [Suspect]
     Active Substance: ALENDRONATE SODIUM
     Indication: HIGH TURNOVER OSTEOPATHY
     Dosage: 70 MG, QW
     Route: 048

REACTIONS (1)
  - Off label use [Unknown]
